FAERS Safety Report 13534565 (Version 4)
Quarter: 2018Q1

REPORT INFORMATION
  Report Type: Report from Study
  Country: US (occurrence: US)
  Receive Date: 20170511
  Receipt Date: 20180112
  Transmission Date: 20180508
  Serious: Yes (Hospitalization, Disabling, Other)
  Sender: FDA-Public Use
  Company Number: US-SA-2017SA083904

PATIENT
  Age: 42 Year
  Sex: Female

DRUGS (5)
  1. LEMTRADA [Suspect]
     Active Substance: ALEMTUZUMAB
     Indication: MULTIPLE SCLEROSIS
     Route: 041
     Dates: start: 20170227, end: 20170301
  2. CELEXA [Concomitant]
     Active Substance: CITALOPRAM HYDROBROMIDE
     Indication: DEPRESSION
     Route: 065
  3. CLONAZEPAM. [Concomitant]
     Active Substance: CLONAZEPAM
     Indication: MUSCLE SPASMS
     Route: 065
  4. DEPAKOTE [Concomitant]
     Active Substance: DIVALPROEX SODIUM
     Indication: MIGRAINE
     Route: 065
  5. VALTREX [Concomitant]
     Active Substance: VALACYCLOVIR HYDROCHLORIDE
     Indication: HERPES ZOSTER
     Route: 065

REACTIONS (6)
  - Dysstasia [Recovered/Resolved]
  - Pain [Recovering/Resolving]
  - Gait inability [Recovered/Resolved]
  - Gastrectomy [Not Recovered/Not Resolved]
  - Impaired driving ability [Not Recovered/Not Resolved]
  - Scar [Not Recovered/Not Resolved]

NARRATIVE: CASE EVENT DATE: 2017
